FAERS Safety Report 9413422 (Version 1)
Quarter: 2013Q3

REPORT INFORMATION
  Report Type: Report from Study
  Country: IE (occurrence: IE)
  Receive Date: 20130722
  Receipt Date: 20130722
  Transmission Date: 20140515
  Serious: No
  Sender: FDA-Public Use
  Company Number: IE-ABBOTT-13P-229-1054278-00

PATIENT
  Sex: Female

DRUGS (2)
  1. SYNAGIS [Suspect]
     Indication: CHONDRODYSTROPHY
     Dosage: ONCE
     Route: 030
     Dates: start: 20121221
  2. SYNAGIS [Suspect]
     Indication: RESPIRATORY TRACT INFECTION

REACTIONS (2)
  - Oropharyngeal pain [Recovered/Resolved]
  - Nasopharyngitis [Recovered/Resolved]
